FAERS Safety Report 6544360-4 (Version None)
Quarter: 2010Q1

REPORT INFORMATION
  Report Type: 
  Country: None (occurrence: None)
  Receive Date: 20100120
  Receipt Date: 20100120
  Transmission Date: 20100710
  Serious: No
  Sender: FDA-Public Use
  Company Number: None

PATIENT
  Age: 71 Year
  Sex: Female

DRUGS (4)
  1. NITROGLYCERIN [Suspect]
     Indication: ANGINA PECTORIS
     Dosage: 1/150 GRAIN, ONE TAB UNDER TONGUE EVERY 5 MINUTES PRN
     Dates: start: 20090501
  2. NITROGLYCERIN [Suspect]
     Indication: CHEST PAIN
     Dosage: 1/150 GRAIN, ONE TAB UNDER TONGUE EVERY 5 MINUTES PRN
     Dates: start: 20090501
  3. NITROGLYCERIN [Suspect]
     Indication: ANGINA PECTORIS
     Dosage: 1/150 GRAIN, ONE TAB UNDER TONGUE EVERY 5 MINUTES PRN
     Dates: start: 20090819
  4. NITROGLYCERIN [Suspect]
     Indication: CHEST PAIN
     Dosage: 1/150 GRAIN, ONE TAB UNDER TONGUE EVERY 5 MINUTES PRN
     Dates: start: 20090819

REACTIONS (2)
  - DRUG INEFFECTIVE [None]
  - PRODUCT SOLUBILITY ABNORMAL [None]
